FAERS Safety Report 20886390 (Version 1)
Quarter: 2022Q2

REPORT INFORMATION
  Report Type: Spontaneous
  Country: GB (occurrence: GB)
  Receive Date: 20220527
  Receipt Date: 20220527
  Transmission Date: 20220721
  Serious: Yes (Other)
  Sender: FDA-Public Use
  Company Number: GB-BAUSCH-BL-2022-012932

PATIENT
  Age: 27 Year
  Sex: Female

DRUGS (1)
  1. HYDROCORTISONE BUTYRATE [Suspect]
     Active Substance: HYDROCORTISONE BUTYRATE
     Indication: Product used for unknown indication
     Route: 061
     Dates: start: 20210601

REACTIONS (2)
  - Emotional distress [Not Recovered/Not Resolved]
  - Rebound effect [Unknown]
